FAERS Safety Report 4760707-3 (Version None)
Quarter: 2005Q3

REPORT INFORMATION
  Report Type: 
  Country: None (occurrence: None)
  Receive Date: 20050826
  Receipt Date: 20050314
  Transmission Date: 20060218
  Serious: Yes (Hospitalization, Other)
  Sender: FDA-Public Use
  Company Number: USA-2005-0019325

PATIENT
  Age: 23 Year
  Sex: Female

DRUGS (2)
  1. OXYCONTIN [Suspect]
     Indication: PAIN
  2. NORCO [Suspect]
     Indication: PAIN
     Dosage: 8 TABLET, DAILY

REACTIONS (3)
  - DRUG WITHDRAWAL SYNDROME [None]
  - OVERDOSE [None]
  - POLYSUBSTANCE ABUSE [None]
